FAERS Safety Report 4604106-3 (Version None)
Quarter: 2005Q1

REPORT INFORMATION
  Report Type: 
  Country: None (occurrence: None)
  Receive Date: 20050309
  Receipt Date: 20050309
  Transmission Date: 20050727
  Serious: Yes (Death)
  Sender: FDA-Public Use
  Company Number: None

PATIENT
  Age: 73 Year
  Sex: Male
  Weight: 76 kg

DRUGS (3)
  1. BALSALAZINE [Suspect]
     Indication: COLITIS ULCERATIVE
     Dosage: 1500 MG TID ORAL
     Route: 048
     Dates: start: 20041110, end: 20050214
  2. PAXELITINE [Concomitant]
  3. AZITHROMYCIN [Concomitant]

REACTIONS (4)
  - FEBRILE NEUTROPENIA [None]
  - PNEUMONIA [None]
  - PSEUDOMONAL BACTERAEMIA [None]
  - SEPSIS [None]
